FAERS Safety Report 4986891-4 (Version None)
Quarter: 2006Q2

REPORT INFORMATION
  Report Type: 
  Country: None (occurrence: None)
  Receive Date: 20060501
  Receipt Date: 20060419
  Transmission Date: 20061013
  Serious: Yes (Life-Threatening)
  Sender: FDA-Public Use
  Company Number: JP-JNJFOC-20060401109

PATIENT
  Age: 74 Year
  Sex: Female
  Weight: 54 kg

DRUGS (12)
  1. REMICADE [Suspect]
     Route: 042
  2. REMICADE [Suspect]
     Indication: RHEUMATOID ARTHRITIS
     Route: 042
  3. IMURAN [Suspect]
     Indication: RHEUMATOID ARTHRITIS
     Route: 048
  4. PREDONINE [Suspect]
     Route: 048
  5. PREDONINE [Suspect]
     Indication: RHEUMATOID ARTHRITIS
     Dosage: DOSE TAPERED
     Route: 048
  6. RIMATIL [Concomitant]
     Indication: RHEUMATOID ARTHRITIS
     Route: 048
  7. ALFAROL [Concomitant]
     Indication: OSTEOPOROSIS
     Dosage: DAILY DOSE= 1 RG
     Route: 048
  8. AMLODIN [Concomitant]
     Indication: HYPERTENSION
     Route: 048
  9. CARDENALIN [Concomitant]
     Indication: HYPERTENSION
     Route: 048
  10. GASTER D [Concomitant]
     Indication: GASTROINTESTINAL DISORDER THERAPY
     Route: 048
  11. BENET [Concomitant]
     Indication: OSTEOPOROSIS
     Route: 048
  12. OXYGEN [Concomitant]
     Route: 055

REACTIONS (4)
  - DIABETES MELLITUS [None]
  - HYPOXIA [None]
  - INTERSTITIAL LUNG DISEASE [None]
  - PNEUMOCYSTIS JIROVECI INFECTION [None]
